FAERS Safety Report 7427259-0 (Version None)
Quarter: 2011Q2

REPORT INFORMATION
  Report Type: 
  Country: None (occurrence: None)
  Receive Date: 20110420
  Receipt Date: 20110415
  Transmission Date: 20111010
  Serious: No
  Sender: FDA-Public Use
  Company Number: US-PFIZER INC-2011039119

PATIENT
  Sex: Female
  Weight: 68.027 kg

DRUGS (8)
  1. CALAN [Suspect]
     Dosage: HALF OF 240 MG TABLET 3 TIMES A DAY
     Route: 048
     Dates: start: 20110303
  2. MOTRIN [Suspect]
     Indication: HEADACHE
     Dosage: 800 MG, UNK
     Route: 048
     Dates: start: 20110101
  3. LOTENSIN [Concomitant]
     Indication: HYPERTENSION
  4. CALAN [Suspect]
     Indication: HYPERTENSION
     Dosage: 180 MG, 2X/DAY
     Route: 048
  5. VERAPAMIL HCL [Suspect]
     Indication: HYPERTENSION
     Dosage: 180 MG, 2X/DAY
     Route: 048
  6. LOTENSIN [Concomitant]
     Indication: CHEST PAIN
     Dosage: 40 MG, 2X/DAY
     Route: 048
  7. PROTONIX [Concomitant]
     Dosage: 40 MG, UNK
  8. LORAZEPAM [Concomitant]
     Dosage: UNK, DAILY

REACTIONS (19)
  - HYPERSENSITIVITY [None]
  - THYROID DISORDER [None]
  - MIGRAINE [None]
  - CHEST PAIN [None]
  - INFLUENZA [None]
  - FEAR [None]
  - ADVERSE DRUG REACTION [None]
  - COLONOSCOPY [None]
  - DRUG INEFFECTIVE [None]
  - HAEMORRHAGE [None]
  - ANXIETY [None]
  - DRUG ADMINISTRATION ERROR [None]
  - MALAISE [None]
  - NAUSEA [None]
  - HEADACHE [None]
  - VOMITING [None]
  - DIZZINESS [None]
  - NERVOUSNESS [None]
  - CRYING [None]
